FAERS Safety Report 8489051-8 (Version None)
Quarter: 2012Q3

REPORT INFORMATION
  Report Type: 
  Country: None (occurrence: None)
  Receive Date: 20120705
  Receipt Date: 20120703
  Transmission Date: 20120928
  Serious: No
  Sender: FDA-Public Use
  Company Number: US-PFIZER INC-2012159742

PATIENT
  Sex: Female
  Weight: 83.9 kg

DRUGS (6)
  1. LYRICA [Suspect]
     Indication: FIBROMYALGIA
     Dosage: 50 MG, DAILY
     Route: 048
     Dates: start: 20120702
  2. LEVOTHYROXINE [Concomitant]
     Indication: HYPOTHYROIDISM
     Dosage: 50 UG, UNK
  3. ACETYLSALICYLIC ACID [Concomitant]
     Indication: PROPHYLAXIS
     Dosage: 81 MG, DAILY
  4. LISINOPRIL [Concomitant]
     Indication: HYPERTENSION
     Dosage: 20 MG, DAILY
  5. OMEPRAZOLE [Concomitant]
     Indication: GASTROOESOPHAGEAL REFLUX DISEASE
     Dosage: 20 MG, UNK
  6. FUROSEMIDE [Concomitant]
     Dosage: 10 MG, AS NEEDED

REACTIONS (1)
  - FEELING ABNORMAL [None]
